FAERS Safety Report 9455692 (Version 2)
Quarter: 2013Q3

REPORT INFORMATION
  Report Type: Spontaneous
  Country: CN (occurrence: CN)
  Receive Date: 20130813
  Receipt Date: 20130912
  Transmission Date: 20140515
  Serious: Yes (Hospitalization, Disabling)
  Sender: FDA-Public Use
  Company Number: CN-PFIZER INC-2013229362

PATIENT
  Age: 62 Year
  Sex: Female
  Weight: 49 kg

DRUGS (2)
  1. CELEBREX [Suspect]
     Indication: RHEUMATOID ARTHRITIS
     Dosage: 100 MG, TWICE DAILY
     Route: 048
     Dates: start: 20120810, end: 20120815
  2. CELEBREX [Suspect]
     Indication: ARTHRALGIA

REACTIONS (3)
  - Hepatic function abnormal [Recovered/Resolved]
  - Feeling abnormal [Recovered/Resolved]
  - Poor quality sleep [Recovered/Resolved]
